FAERS Safety Report 17019405 (Version 7)
Quarter: 2022Q1

REPORT INFORMATION
  Report Type: Report from Study
  Country: US (occurrence: None)
  Receive Date: 20191112
  Receipt Date: 20220310
  Transmission Date: 20220423
  Serious: Yes (Hospitalization)
  Sender: FDA-Public Use
  Company Number: US-ROCHE-2461356

PATIENT
  Age: 63 Year
  Sex: Female
  Weight: 75.8 kg

DRUGS (79)
  1. ATEZOLIZUMAB [Suspect]
     Active Substance: ATEZOLIZUMAB
     Indication: Ovarian cancer
     Dosage: DATE OF MOST RECENT DOSE OF ATEZOLIZUMAB/PLACEBO PRIOR TO AE/SAE ONSET: 25/MAY/2018
     Route: 041
     Dates: start: 20180525
  2. PACLITAXEL [Suspect]
     Active Substance: PACLITAXEL
     Indication: Ovarian cancer
     Dosage: DATE OF MOST RECENT DOSE 25/MAY/2018 (327 MG )
     Route: 042
     Dates: start: 20180525
  3. CARBOPLATIN [Suspect]
     Active Substance: CARBOPLATIN
     Indication: Ovarian cancer
     Dosage: MOST RECENT DOSE ON 25/MAY/2018, 738 MG?CARBOPLATIN AT A DOSE TO ACHIEVE A TARGET AREA UNDER THE CUR
     Route: 042
     Dates: start: 20180525
  4. MIRALAX [Concomitant]
     Active Substance: POLYETHYLENE GLYCOL 3350
     Indication: Constipation
     Dates: start: 20180612, end: 20180612
  5. LACTULOSE [Concomitant]
     Active Substance: LACTULOSE
     Indication: Constipation
     Dates: start: 20180615, end: 20180615
  6. LACTULOSE [Concomitant]
     Active Substance: LACTULOSE
     Dates: start: 20180612, end: 20180612
  7. HYDRALAZINE [Concomitant]
     Active Substance: HYDRALAZINE HYDROCHLORIDE
     Indication: Hypertension
     Dates: start: 20180607, end: 20180607
  8. GLYCERIN SUPPOSITORIES [Concomitant]
     Indication: Constipation
     Dates: start: 20180612, end: 20180612
  9. GABAPENTIN [Concomitant]
     Active Substance: GABAPENTIN
     Indication: Pain
     Dates: start: 20180606, end: 20180606
  10. GABAPENTIN [Concomitant]
     Active Substance: GABAPENTIN
     Indication: Arthralgia
     Dates: start: 20180612, end: 20180613
  11. GABAPENTIN [Concomitant]
     Active Substance: GABAPENTIN
     Dates: start: 20180613
  12. GABAPENTIN [Concomitant]
     Active Substance: GABAPENTIN
     Dates: start: 20180523, end: 20180526
  13. ZARXIO [Concomitant]
     Active Substance: FILGRASTIM-SNDZ
     Indication: Neutrophil count decreased
     Dates: start: 20180608, end: 20180609
  14. ENOXAPARIN [Concomitant]
     Active Substance: ENOXAPARIN
     Dates: start: 20180615, end: 20180906
  15. DOCUSATE SODIUM [Concomitant]
     Active Substance: DOCUSATE SODIUM
     Indication: Constipation
     Dates: start: 20180611, end: 20180612
  16. DIPHENHYDRAMINE [Concomitant]
     Active Substance: DIPHENHYDRAMINE
     Dates: start: 20180615, end: 20180615
  17. CITALOPRAM [Concomitant]
     Active Substance: CITALOPRAM HYDROBROMIDE
     Indication: Anxiety
     Dates: start: 20180606, end: 20180606
  18. ALPRAZOLAM [Concomitant]
     Active Substance: ALPRAZOLAM
     Indication: Insomnia
     Dates: start: 20180612
  19. ALPRAZOLAM [Concomitant]
     Active Substance: ALPRAZOLAM
     Dates: start: 20180611, end: 20180611
  20. ALBUMIN HUMAN [Concomitant]
     Active Substance: ALBUMIN HUMAN
     Indication: Hypoalbuminaemia
     Dates: start: 20180608, end: 20180608
  21. ACETAMINOPHEN [Concomitant]
     Active Substance: ACETAMINOPHEN
     Dates: start: 20180615, end: 20180615
  22. SODIUM CHLORIDE [Concomitant]
     Active Substance: SODIUM CHLORIDE
     Indication: Hyponatraemia
     Dates: start: 20180606, end: 20180614
  23. SODIUM CHLORIDE [Concomitant]
     Active Substance: SODIUM CHLORIDE
     Dates: start: 20180607, end: 20180608
  24. DEXTROSE\SODIUM CHLORIDE [Concomitant]
     Active Substance: DEXTROSE\SODIUM CHLORIDE
     Indication: Hyponatraemia
     Dosage: DEXTROSE 5% SODIUM CHLORIDE 0.45%
     Dates: start: 20180607, end: 20180611
  25. MORPHINE [Concomitant]
     Active Substance: MORPHINE
     Indication: Abdominal pain
     Dates: start: 20180608, end: 20180608
  26. MORPHINE [Concomitant]
     Active Substance: MORPHINE
     Dates: start: 20180612, end: 20180615
  27. MORPHINE [Concomitant]
     Active Substance: MORPHINE
     Dates: start: 20180608, end: 20180612
  28. MORPHINE [Concomitant]
     Active Substance: MORPHINE
     Dates: start: 20180522, end: 20180526
  29. MORPHINE [Concomitant]
     Active Substance: MORPHINE
     Dates: start: 20180605, end: 20180605
  30. TRAMADOL [Concomitant]
     Active Substance: TRAMADOL
     Indication: Abdominal pain
     Dates: start: 20180608, end: 20180614
  31. TRAMADOL [Concomitant]
     Active Substance: TRAMADOL
     Dates: start: 20180605, end: 20180605
  32. SIMETHICONE (DIMETHICONE) [Concomitant]
     Active Substance: DIMETHICONE
     Indication: Constipation
     Dates: start: 20180606, end: 20180612
  33. PROCHLORPERAZINE MALEATE [Concomitant]
     Active Substance: PROCHLORPERAZINE MALEATE
     Indication: Nausea
     Dates: start: 20180606
  34. POTASSIUM CHLORIDE [Concomitant]
     Active Substance: POTASSIUM CHLORIDE
     Indication: Hypokalaemia
     Dates: start: 20180607, end: 20180611
  35. POTASSIUM CHLORIDE [Concomitant]
     Active Substance: POTASSIUM CHLORIDE
     Dates: start: 20180614, end: 20180614
  36. POTASSIUM CHLORIDE [Concomitant]
     Active Substance: POTASSIUM CHLORIDE
     Dates: start: 20180612, end: 20180612
  37. POTASSIUM CHLORIDE [Concomitant]
     Active Substance: POTASSIUM CHLORIDE
     Dates: start: 20180525, end: 20180525
  38. OXYCODONE [Concomitant]
     Active Substance: OXYCODONE
     Indication: Abdominal pain
     Dates: start: 20180613, end: 20180614
  39. OXYCODONE [Concomitant]
     Active Substance: OXYCODONE
     Dates: start: 20180613, end: 20180615
  40. OXYCODONE [Concomitant]
     Active Substance: OXYCODONE
     Dates: start: 20180523
  41. ONDANSETRON [Concomitant]
     Active Substance: ONDANSETRON
     Indication: Nausea
     Dates: start: 20180606, end: 20180606
  42. ONDANSETRON [Concomitant]
     Active Substance: ONDANSETRON
     Dates: start: 20180605, end: 20180605
  43. MAGNESIUM SULFATE [Concomitant]
     Active Substance: MAGNESIUM SULFATE
     Dates: start: 20180607, end: 20180608
  44. SENNA [Concomitant]
     Active Substance: SENNA LEAF\SENNOSIDES\SENNOSIDES A AND B
     Indication: Constipation
     Dates: start: 20180612, end: 20180612
  45. SENNA [Concomitant]
     Active Substance: SENNA LEAF\SENNOSIDES\SENNOSIDES A AND B
     Dates: start: 20180606, end: 20180606
  46. SENNA [Concomitant]
     Active Substance: SENNA LEAF\SENNOSIDES\SENNOSIDES A AND B
     Dates: start: 20180523, end: 20180523
  47. PREDNISONE [Concomitant]
     Active Substance: PREDNISONE
     Indication: Alanine aminotransferase increased
     Route: 048
     Dates: start: 20180615, end: 20180615
  48. PREDNISONE [Concomitant]
     Active Substance: PREDNISONE
     Indication: Aspartate aminotransferase increased
     Route: 048
     Dates: start: 20180615, end: 20180620
  49. PREDNISONE [Concomitant]
     Active Substance: PREDNISONE
     Route: 048
     Dates: start: 20180621, end: 20180625
  50. PREDNISONE [Concomitant]
     Active Substance: PREDNISONE
     Route: 048
     Dates: start: 20180626, end: 20180630
  51. PANTOPRAZOLE [Concomitant]
     Active Substance: PANTOPRAZOLE
     Indication: Gastrooesophageal reflux disease
     Dates: start: 20180615
  52. PANTOPRAZOLE [Concomitant]
     Active Substance: PANTOPRAZOLE
     Dates: start: 20180608, end: 20180614
  53. PANTOPRAZOLE [Concomitant]
     Active Substance: PANTOPRAZOLE
     Dates: start: 20180606, end: 20180608
  54. PANTOPRAZOLE [Concomitant]
     Active Substance: PANTOPRAZOLE
     Dates: start: 20180522, end: 20180526
  55. METOPROLOL SUCCINATE [Concomitant]
     Active Substance: METOPROLOL SUCCINATE
     Indication: Anxiety
     Dates: start: 20180612, end: 20180614
  56. METHYLNALTREXONE [Concomitant]
     Active Substance: METHYLNALTREXONE
     Indication: Constipation
     Dates: start: 20180613, end: 20180613
  57. METHYLPREDNISOLONE [Concomitant]
     Active Substance: METHYLPREDNISOLONE
     Indication: Alanine aminotransferase increased
     Route: 042
     Dates: start: 20180612, end: 20180613
  58. METHYLPREDNISOLONE [Concomitant]
     Active Substance: METHYLPREDNISOLONE
     Route: 042
     Dates: start: 20180608, end: 20180611
  59. METHYLPREDNISOLONE [Concomitant]
     Active Substance: METHYLPREDNISOLONE
     Route: 042
     Dates: start: 20180607, end: 20180608
  60. METHYLENE BLUE [Concomitant]
     Active Substance: METHYLENE BLUE
     Indication: Anaemia
     Dates: start: 20180607, end: 20180607
  61. MELATONIN [Concomitant]
     Active Substance: MELATONIN
     Indication: Insomnia
     Dates: start: 20180611, end: 20180614
  62. LORAZEPAM [Concomitant]
     Active Substance: LORAZEPAM
     Indication: Anxiety
     Dates: start: 20180606, end: 20180606
  63. LORAZEPAM [Concomitant]
     Active Substance: LORAZEPAM
     Dates: start: 20180522, end: 20180526
  64. MILK OF MAGNESIA [Concomitant]
     Active Substance: MAGNESIUM HYDROXIDE
     Indication: Constipation
     Dates: start: 20180612, end: 20180612
  65. REGLAN [Concomitant]
     Active Substance: METOCLOPRAMIDE HYDROCHLORIDE
     Indication: Nausea
     Dates: start: 20180612, end: 20180612
  66. TYLENOL [Concomitant]
     Active Substance: ACETAMINOPHEN
     Dates: start: 20180523, end: 20180523
  67. TYLENOL [Concomitant]
     Active Substance: ACETAMINOPHEN
     Dates: start: 20180614, end: 20180614
  68. DEXAMETHASONE [Concomitant]
     Active Substance: DEXAMETHASONE
     Indication: Aspartate aminotransferase increased
     Route: 048
     Dates: start: 20180523, end: 20180525
  69. COLACE [Concomitant]
     Active Substance: DOCUSATE SODIUM
     Indication: Constipation
     Dates: start: 20180522, end: 20180523
  70. METOCLOPRAMIDE [Concomitant]
     Active Substance: METOCLOPRAMIDE
     Indication: Nausea
     Dates: start: 20180523, end: 20180526
  71. SORBITOL [Concomitant]
     Active Substance: SORBITOL
     Indication: Constipation
     Dates: start: 20180524, end: 20180525
  72. ZOFRAN [Concomitant]
     Active Substance: ONDANSETRON HYDROCHLORIDE
     Indication: Nausea
     Dates: start: 20180522, end: 20180526
  73. MICRO K [Concomitant]
     Indication: Hypokalaemia
     Dates: start: 20180615
  74. BENADRYL [Concomitant]
     Active Substance: DIPHENHYDRAMINE HYDROCHLORIDE
     Indication: Premedication
     Dates: start: 20180523, end: 20180523
  75. GABAPENTIN [Concomitant]
     Active Substance: GABAPENTIN
     Indication: Arthralgia
     Dates: start: 20180523, end: 20180526
  76. DOXYCYCLINE HYDROCHLORIDE [Concomitant]
     Active Substance: DOXYCYCLINE HYDROCHLORIDE
     Indication: Neoplasm malignant
     Dates: start: 20180701
  77. GEMCITABINE [Concomitant]
     Active Substance: GEMCITABINE
     Indication: Neoplasm malignant
     Dates: start: 20180701
  78. BEVACIZUMAB [Concomitant]
     Active Substance: BEVACIZUMAB
     Indication: Neoplasm malignant
     Dates: start: 20180701
  79. ABRAXANE [Concomitant]
     Active Substance: PACLITAXEL
     Indication: Neoplasm malignant
     Dates: start: 20180701

REACTIONS (3)
  - Embolism [Recovered/Resolved]
  - Aspartate aminotransferase increased [Recovered/Resolved]
  - Alanine aminotransferase increased [Recovered/Resolved]

NARRATIVE: CASE EVENT DATE: 20180605
